FAERS Safety Report 10502848 (Version 2)
Quarter: 2014Q4

REPORT INFORMATION
  Report Type: Report from Study
  Country: JP (occurrence: JP)
  Receive Date: 20141007
  Receipt Date: 20141007
  Transmission Date: 20150528
  Serious: Yes (Death)
  Sender: FDA-Public Use
  Company Number: JP-CUBIST PHARMACEUTICALS, INC.-2013CBST001335

PATIENT

DRUGS (5)
  1. VENILON [Concomitant]
     Active Substance: HUMAN IMMUNOGLOBULIN G
     Indication: PRODUCT USED FOR UNKNOWN INDICATION
     Dosage: 5 G, ONCE DAILY
     Route: 051
     Dates: start: 20131206, end: 20131209
  2. VANCOMYCIN [Concomitant]
     Active Substance: VANCOMYCIN
     Indication: STAPHYLOCOCCAL SEPSIS
     Dosage: 1 G, QD
     Route: 041
     Dates: start: 20131204, end: 20131204
  3. CUBICIN [Suspect]
     Active Substance: DAPTOMYCIN
     Indication: STAPHYLOCOCCAL SEPSIS
     Dosage: 6 MG/KG, QOD
     Route: 041
     Dates: start: 20131205, end: 20131210
  4. CUBICIN [Suspect]
     Active Substance: DAPTOMYCIN
     Indication: OFF LABEL USE
  5. ROCEPHIN [Concomitant]
     Active Substance: CEFTRIAXONE SODIUM
     Indication: STAPHYLOCOCCAL SEPSIS
     Dosage: 2 G, QD
     Route: 041
     Dates: start: 20131202, end: 20131204

REACTIONS (3)
  - Drug ineffective [Unknown]
  - Off label use [Unknown]
  - Multi-organ failure [Fatal]

NARRATIVE: CASE EVENT DATE: 201312
